FAERS Safety Report 23910776 (Version 1)
Quarter: 2024Q2

REPORT INFORMATION
  Report Type: Spontaneous
  Country: US (occurrence: US)
  Receive Date: 20240528
  Receipt Date: 20240528
  Transmission Date: 20240716
  Serious: No
  Sender: FDA-Public Use
  Company Number: US-AVADEL CNS PHARMACEUTICALS, LLC-2024AVA00265

PATIENT
  Sex: Female
  Weight: 68.027 kg

DRUGS (34)
  1. LUMRYZ [Suspect]
     Active Substance: SODIUM OXYBATE
     Indication: Narcolepsy
     Dosage: 1/4 PACKET, ONCE NIGHTLY
     Route: 048
     Dates: start: 20240124, end: 20240124
  2. LUMRYZ [Suspect]
     Active Substance: SODIUM OXYBATE
     Indication: Cataplexy
     Dosage: 1/2 PACKET, ONCE NIGHTLY
     Route: 048
     Dates: start: 20240125, end: 20240125
  3. LUMRYZ [Suspect]
     Active Substance: SODIUM OXYBATE
     Dosage: 3/4 PACKET, ONCE NIGHTLY
     Route: 048
     Dates: start: 20240126, end: 20240126
  4. LUMRYZ [Suspect]
     Active Substance: SODIUM OXYBATE
     Dosage: 9 G, ONCE NIGHTLY
     Route: 048
     Dates: start: 20240127, end: 20240127
  5. TYLENOL EXTRA STRENGTH [Concomitant]
     Active Substance: ACETAMINOPHEN
  6. VERAPAMIL [Concomitant]
     Active Substance: VERAPAMIL HYDROCHLORIDE
  7. TRAMADOL HCL ER [Concomitant]
  8. TIZANIDINE HYDROCHLORIDE [Concomitant]
     Active Substance: TIZANIDINE HYDROCHLORIDE
  9. TEMAZEPAM [Concomitant]
     Active Substance: TEMAZEPAM
  10. PROGESTERONE [Concomitant]
     Active Substance: PROGESTERONE
  11. ELMIRON [Concomitant]
     Active Substance: PENTOSAN POLYSULFATE SODIUM
  12. OMEPRAZOLE [Concomitant]
     Active Substance: DONEPEZIL HYDROCHLORIDE\OMEPRAZOLE\OMEPRAZOLE MAGNESIUM
  13. OLOPATADINE HYDROCHLORIDE [Concomitant]
     Active Substance: OLOPATADINE HYDROCHLORIDE
  14. NALTREXONE HYDROCHLORIDE [Concomitant]
     Active Substance: NALTREXONE HYDROCHLORIDE
  15. MODAFINIL [Concomitant]
     Active Substance: MODAFINIL
  16. RITALIN [Concomitant]
     Active Substance: METHYLPHENIDATE HYDROCHLORIDE
  17. URIBEL [Concomitant]
     Active Substance: HYOSCYAMINE SULFATE\METHENAMINE\METHYLENE BLUE\PHENYL SALICYLATE\SODIUM PHOSPHATE, MONOBASIC, MONOHY
  18. MAGNESIUM [Concomitant]
     Active Substance: MAGNESIUM
  19. TIROSINT [Concomitant]
     Active Substance: LEVOTHYROXINE SODIUM
  20. HYDROXYZINE HYDROCHLORIDE [Concomitant]
     Active Substance: HYDROXYZINE HYDROCHLORIDE
  21. FROVA [Concomitant]
     Active Substance: FROVATRIPTAN SUCCINATE
  22. AJOVY [Concomitant]
     Active Substance: FREMANEZUMAB-VFRM
  23. PEPCID [Concomitant]
     Active Substance: FAMOTIDINE
  24. ESTRADIOL [Concomitant]
     Active Substance: ESTRADIOL
     Dosage: UNK, 1X/WEEK
  25. CYCLOBENZAPRINE HYDROCHLORIDE [Concomitant]
     Active Substance: CYCLOBENZAPRINE HYDROCHLORIDE
  26. CELECOXIB [Concomitant]
     Active Substance: CELECOXIB
  27. BUPROPION HYDROCHLORIDE [Concomitant]
     Active Substance: BUPROPION HYDROCHLORIDE
  28. BACLOFEN [Concomitant]
     Active Substance: BACLOFEN
  29. ASPIRIN [Concomitant]
     Active Substance: ASPIRIN
  30. UNSPECIFIED MUSCLE RELAXERS [Concomitant]
  31. RESTORIL [Concomitant]
     Active Substance: TEMAZEPAM
  32. EFFEXOR [Concomitant]
     Active Substance: VENLAFAXINE HYDROCHLORIDE
  33. UNSPECIFIED THYROID MEDICATIONS [Concomitant]
  34. ESTROGENS [Concomitant]
     Active Substance: ESTROGENS

REACTIONS (5)
  - Feeling abnormal [Recovered/Resolved]
  - Hypoaesthesia [Recovered/Resolved]
  - Euphoric mood [Recovered/Resolved]
  - Feeling drunk [Recovered/Resolved]
  - Wrong technique in product usage process [Recovered/Resolved]

NARRATIVE: CASE EVENT DATE: 20240101
